FAERS Safety Report 5579989-3 (Version None)
Quarter: 2007Q4

REPORT INFORMATION
  Report Type: 
  Country: None (occurrence: None)
  Receive Date: 20071227
  Receipt Date: 20071126
  Transmission Date: 20080405
  Serious: Yes (Hospitalization)
  Sender: FDA-Public Use
  Company Number: B0497755A

PATIENT
  Age: 31 Year
  Sex: Male

DRUGS (1)
  1. PAROXETINE HCL [Suspect]
     Indication: ANXIETY DISORDER
     Dosage: ORAL
     Route: 048

REACTIONS (6)
  - AGITATION [None]
  - ALTERED STATE OF CONSCIOUSNESS [None]
  - DEPRESSION [None]
  - EMOTIONAL DISORDER [None]
  - INTENTIONAL OVERDOSE [None]
  - SELF MUTILATION [None]
